FAERS Safety Report 6692295-9 (Version None)
Quarter: 2010Q2

REPORT INFORMATION
  Report Type: 
  Country: None (occurrence: None)
  Receive Date: 20100422
  Receipt Date: 20100407
  Transmission Date: 20101027
  Serious: Yes (Other)
  Sender: FDA-Public Use
  Company Number: US-BAYER-201014170NA

PATIENT
  Age: 42 Year
  Sex: Female

DRUGS (8)
  1. BETASERON [Suspect]
     Indication: RELAPSING-REMITTING MULTIPLE SCLEROSIS
     Dosage: BETAJECT
     Route: 058
     Dates: start: 20091226, end: 20100211
  2. BETASERON [Suspect]
     Dosage: TOTAL DAILY DOSE: 6 MIU
     Route: 058
     Dates: start: 20100307, end: 20100404
  3. ANTIBIOTIC [Suspect]
     Indication: DRUG USE FOR UNKNOWN INDICATION
  4. MACROBID [Concomitant]
  5. BIRTH CONTROL PILLS [Concomitant]
     Indication: CONTRACEPTION
  6. ANTIDEPRESSANT [Concomitant]
  7. DETROL [Concomitant]
  8. LYRICA [Concomitant]

REACTIONS (8)
  - BLADDER DISORDER [None]
  - BLOOD PRESSURE INCREASED [None]
  - ECZEMA [None]
  - PYREXIA [None]
  - RASH ERYTHEMATOUS [None]
  - RASH PRURITIC [None]
  - TENDERNESS [None]
  - URINARY RETENTION [None]
